FAERS Safety Report 17677549 (Version 1)
Quarter: 2020Q2

REPORT INFORMATION
  Report Type: Spontaneous
  Country: US (occurrence: US)
  Receive Date: 20200416
  Receipt Date: 20200416
  Transmission Date: 20200714
  Serious: No
  Sender: FDA-Public Use
  Company Number: US-ROCHE-2410186

PATIENT
  Age: 45 Year
  Sex: Female
  Weight: 54.48 kg

DRUGS (6)
  1. LUPRON [Concomitant]
     Active Substance: LEUPROLIDE ACETATE
     Indication: BREAST CANCER
     Route: 030
     Dates: start: 201906
  2. HYDROCHLOROTHIAZIDE. [Concomitant]
     Active Substance: HYDROCHLOROTHIAZIDE
     Indication: HYPERTENSION
     Dosage: CHANGED TO AMLODIPINE
     Route: 048
     Dates: start: 201906, end: 201907
  3. LOSARTAN. [Concomitant]
     Active Substance: LOSARTAN
     Indication: HYPERTENSION
     Dosage: STARTED BEFORE KADCYLA
     Route: 048
  4. KADCYLA [Suspect]
     Active Substance: ADO-TRASTUZUMAB EMTANSINE
     Dosage: DATE OF LAST TRASTUZUMAB EMTANSINE INFUSION: 09/SEP/2019
     Route: 042
     Dates: start: 201906
  5. AMLODIPINE [Concomitant]
     Active Substance: AMLODIPINE BESYLATE
     Indication: HYPERTENSION
     Route: 048
     Dates: start: 201907
  6. ANASTROZOLE. [Concomitant]
     Active Substance: ANASTROZOLE
     Dosage: STARTED BEFORE KADCYLA
     Route: 048

REACTIONS (4)
  - Bone pain [Not Recovered/Not Resolved]
  - Arthralgia [Not Recovered/Not Resolved]
  - Platelet count decreased [Not Recovered/Not Resolved]
  - Blood potassium decreased [Not Recovered/Not Resolved]

NARRATIVE: CASE EVENT DATE: 201907
